FAERS Safety Report 17264834 (Version 11)
Quarter: 2021Q4

REPORT INFORMATION
  Report Type: Spontaneous
  Country: ES (occurrence: ES)
  Receive Date: 20200113
  Receipt Date: 20211029
  Transmission Date: 20220303
  Serious: Yes (Death, Hospitalization, Other)
  Sender: FDA-Public Use
  Company Number: ES-GILEAD-2020-0446334

PATIENT
  Age: 28 Year
  Sex: Male
  Weight: 71 kg

DRUGS (2)
  1. YESCARTA [Suspect]
     Active Substance: AXICABTAGENE CILOLEUCEL
     Indication: Diffuse large B-cell lymphoma refractory
     Dosage: 0.4 - 2 X 10^8 CELLS SUSPENSION FOR INFUSION, ONE 68-ML BAG
     Route: 042
     Dates: start: 20191226, end: 20191226
  2. R GEMOX [Concomitant]
     Indication: Chemotherapy

REACTIONS (10)
  - Diffuse large B-cell lymphoma refractory [Fatal]
  - Lactic acidosis [Fatal]
  - Pelvic pain [Fatal]
  - Abdominal pain [Fatal]
  - Enterocolitis [Fatal]
  - Septic shock [Fatal]
  - Pancytopenia [Not Recovered/Not Resolved]
  - Hypotension [Fatal]
  - Cytokine release syndrome [Recovered/Resolved]
  - Immune effector cell-associated neurotoxicity syndrome [Recovered/Resolved]

NARRATIVE: CASE EVENT DATE: 20191226
